FAERS Safety Report 7632485-1 (Version None)
Quarter: 2011Q3

REPORT INFORMATION
  Report Type: 
  Country: None (occurrence: None)
  Receive Date: 20110725
  Receipt Date: 20100922
  Transmission Date: 20111222
  Serious: Yes (Other)
  Sender: FDA-Public Use
  Company Number: US-BRISTOL-MYERS SQUIBB COMPANY-15294374

PATIENT
  Age: 81 Year
  Sex: Male

DRUGS (2)
  1. NAPROXEN (ALEVE) [Suspect]
     Route: 065
  2. COUMADIN [Suspect]
     Route: 065

REACTIONS (2)
  - HAEMATEMESIS [None]
  - GASTROINTESTINAL HAEMORRHAGE [None]
